FAERS Safety Report 25255446 (Version 1)
Quarter: 2025Q2

REPORT INFORMATION
  Report Type: Spontaneous
  Country: NL (occurrence: NL)
  Receive Date: 20250430
  Receipt Date: 20250430
  Transmission Date: 20250716
  Serious: Yes (Hospitalization)
  Sender: SANDOZ
  Company Number: None

PATIENT
  Age: 56 Year
  Sex: Male

DRUGS (6)
  1. ATEZOLIZUMAB [Suspect]
     Active Substance: ATEZOLIZUMAB
     Indication: Carcinoid tumour pulmonary
     Route: 042
     Dates: start: 20240410, end: 20240911
  2. BEVACIZUMAB [Suspect]
     Active Substance: BEVACIZUMAB
     Indication: Carcinoid tumour pulmonary
     Route: 042
     Dates: start: 20240410, end: 20240911
  3. CARBOPLATIN [Suspect]
     Active Substance: CARBOPLATIN
     Indication: Carcinoid tumour pulmonary
     Route: 042
     Dates: start: 20240410, end: 20240620
  4. OSIMERTINIB [Suspect]
     Active Substance: OSIMERTINIB
     Indication: Carcinoid tumour pulmonary
     Route: 065
     Dates: start: 20241231
  5. PACLITAXEL [Suspect]
     Active Substance: PACLITAXEL
     Indication: Carcinoid tumour pulmonary
     Route: 042
     Dates: start: 20240410, end: 20240620
  6. PEMETREXED [Suspect]
     Active Substance: PEMETREXED
     Indication: Carcinoid tumour pulmonary
     Route: 065
     Dates: start: 20241009, end: 20241210

REACTIONS (1)
  - Hyperglycaemia [Not Recovered/Not Resolved]

NARRATIVE: CASE EVENT DATE: 20250217
